FAERS Safety Report 4499427-1 (Version None)
Quarter: 2004Q4

REPORT INFORMATION
  Report Type: 
  Country: None (occurrence: None)
  Receive Date: 20040928
  Receipt Date: 20040809
  Transmission Date: 20050328
  Serious: No
  Sender: FDA-Public Use
  Company Number: 04P-163-0269838-00

PATIENT
  Age: 50 Year
  Sex: Female

DRUGS (5)
  1. HUMIRA [Suspect]
     Indication: RHEUMATOID ARTHRITIS
     Dosage: 40 MG, 1 IN 2 WK, SUBCUTANEOUS
     Route: 058
     Dates: start: 20040717
  2. ULTRACEPT [Concomitant]
  3. LEVATHROID [Concomitant]
  4. ALPRAZOLAM [Concomitant]
  5. FOLTIX [Concomitant]

REACTIONS (5)
  - CONDITION AGGRAVATED [None]
  - RHEUMATOID ARTHRITIS [None]
  - SALIVARY GLAND ENLARGEMENT [None]
  - SJOGREN'S SYNDROME [None]
  - TOOTHACHE [None]
